FAERS Safety Report 10630591 (Version 1)
Quarter: 2014Q4

REPORT INFORMATION
  Report Type: Spontaneous
  Country: US (occurrence: None)
  Receive Date: 20141203
  Receipt Date: 20141203
  Transmission Date: 20150529
  Serious: Yes (Life-Threatening, Hospitalization, Disabling, Other)
  Sender: FDA-Public Use
  Company Number: None

PATIENT
  Age: 62 Year
  Sex: Male
  Weight: 81.65 kg

DRUGS (1)
  1. INVOKANA [Suspect]
     Active Substance: CANAGLIFLOZIN
     Indication: BLOOD GLUCOSE INCREASED
     Dosage: 1 PILL A DAY  ONCE DAILY --
     Dates: start: 20140831, end: 20140919

REACTIONS (13)
  - Skin ulcer [None]
  - Impaired work ability [None]
  - Vomiting [None]
  - Diarrhoea [None]
  - Sepsis [None]
  - Joint swelling [None]
  - Abdominal pain upper [None]
  - Abdominal discomfort [None]
  - Asthenia [None]
  - Blood glucose decreased [None]
  - Dyspnoea [None]
  - Blood potassium decreased [None]
  - Dizziness [None]
